FAERS Safety Report 7917247-X (Version None)
Quarter: 2011Q4

REPORT INFORMATION
  Report Type: 
  Country: None (occurrence: None)
  Receive Date: 20111116
  Receipt Date: 20111104
  Transmission Date: 20120403
  Serious: Yes (Hospitalization, Other)
  Sender: FDA-Public Use
  Company Number: PHHY2011CN86103

PATIENT
  Age: 80 Year
  Sex: Female

DRUGS (6)
  1. EXJADE [Suspect]
     Indication: SERUM FERRITIN INCREASED
     Dosage: 10 MG/KG, DAILY
     Route: 048
     Dates: start: 20110801
  2. LISINOPRIL [Concomitant]
     Indication: HYPERTENSION
  3. FUFANG XIANZHULI [Concomitant]
     Indication: PYREXIA
     Route: 048
  4. AMLODIPINE [Concomitant]
     Indication: HYPERTENSION
  5. INSULIN [Concomitant]
     Indication: DIABETES MELLITUS
  6. FUFANG XIANZHULI [Concomitant]
     Indication: INCREASED UPPER AIRWAY SECRETION

REACTIONS (7)
  - TUMOUR MARKER INCREASED [None]
  - FAECES DISCOLOURED [None]
  - URINARY TRACT INFECTION [None]
  - HAEMATURIA [None]
  - HAEMATOCHEZIA [None]
  - GASTROINTESTINAL HAEMORRHAGE [None]
  - HAEMOGLOBIN DECREASED [None]
